FAERS Safety Report 4922949-3 (Version None)
Quarter: 2006Q1

REPORT INFORMATION
  Report Type: 
  Country: None (occurrence: None)
  Receive Date: 20060224
  Receipt Date: 20050510
  Transmission Date: 20060701
  Serious: Yes (Hospitalization)
  Sender: FDA-Public Use
  Company Number: US-MERCK-0505USA01362

PATIENT
  Age: 58 Year
  Sex: Female
  Weight: 72 kg

DRUGS (2)
  1. VIOXX [Suspect]
     Indication: ARTHRITIS
     Route: 048
     Dates: start: 20010901, end: 20011101
  2. VIOXX [Suspect]
     Indication: PAIN
     Route: 048
     Dates: start: 20010901, end: 20011101

REACTIONS (4)
  - AORTIC OCCLUSION [None]
  - ARTHROPATHY [None]
  - MUSCULOSKELETAL DISORDER [None]
  - MYOCARDIAL INFARCTION [None]
